FAERS Safety Report 24883765 (Version 1)
Quarter: 2025Q1

REPORT INFORMATION
  Report Type: Spontaneous
  Country: US (occurrence: US)
  Receive Date: 20250124
  Receipt Date: 20250124
  Transmission Date: 20250409
  Serious: No
  Sender: BRISTOL-MYERS SQUIBB COMPANY
  Company Number: US-BRISTOL-MYERS SQUIBB COMPANY-2025-009126

PATIENT
  Age: 78 Year
  Sex: Female

DRUGS (1)
  1. ZEPOSIA [Suspect]
     Active Substance: OZANIMOD HYDROCHLORIDE
     Indication: Diverticulum intestinal
     Route: 048
     Dates: start: 202401

REACTIONS (3)
  - Diverticulum intestinal [Unknown]
  - Feeling hot [Unknown]
  - Condition aggravated [Unknown]

NARRATIVE: CASE EVENT DATE: 20241201
